FAERS Safety Report 15538904 (Version 1)
Quarter: 2018Q4

REPORT INFORMATION
  Report Type: Spontaneous
  Country: US (occurrence: US)
  Receive Date: 20181022
  Receipt Date: 20181022
  Transmission Date: 20190205
  Serious: No
  Sender: FDA-Public Use
  Company Number: US-SA-2018SA271297

PATIENT
  Sex: Male

DRUGS (1)
  1. ROLAIDS EXTRA STRENGTH MINT [Suspect]
     Active Substance: CALCIUM CARBONATE\MAGNESIUM HYDROXIDE
     Dosage: UNK

REACTIONS (3)
  - Product quality issue [Unknown]
  - Throat irritation [Unknown]
  - Choking sensation [Unknown]
